FAERS Safety Report 20622763 (Version 1)
Quarter: 2022Q1

REPORT INFORMATION
  Report Type: Spontaneous
  Country: CN (occurrence: CN)
  Receive Date: 20220322
  Receipt Date: 20220322
  Transmission Date: 20220423
  Serious: Yes (Other)
  Sender: FDA-Public Use
  Company Number: CN-ORGANON-O2203CHN002049

PATIENT
  Age: 3 Year
  Sex: Male
  Weight: 15 kg

DRUGS (2)
  1. SINGULAIR [Suspect]
     Active Substance: MONTELUKAST SODIUM
     Indication: Antiallergic therapy
     Dosage: 1 BAG, QD
     Route: 048
     Dates: start: 20220310, end: 20220312
  2. LEVOCETIRIZINE HYDROCHLORIDE GRANULES [Concomitant]
     Indication: Antiallergic therapy
     Dosage: 1 BAG, QD
     Route: 048
     Dates: start: 20220310, end: 20220316

REACTIONS (1)
  - Haematochezia [Recovered/Resolved]

NARRATIVE: CASE EVENT DATE: 20220311
